FAERS Safety Report 9703841 (Version 1)
Quarter: 2013Q4

REPORT INFORMATION
  Report Type: Spontaneous
  Country: US (occurrence: None)
  Receive Date: 20131121
  Receipt Date: 20131121
  Transmission Date: 20140711
  Serious: Yes (Disabling)
  Sender: FDA-Public Use
  Company Number: None

PATIENT
  Age: 63 Year
  Sex: Female
  Weight: 99.79 kg

DRUGS (1)
  1. CIPRO [Suspect]
     Indication: INTESTINAL PERFORATION
     Dosage: 4 DAYS IV PLUS 10  TWICE DAILY  INTO A VEIN?DAYS PILLS
     Dates: start: 20121004, end: 20121018

REACTIONS (16)
  - Pain [None]
  - Arthralgia [None]
  - Pain in extremity [None]
  - Pain in extremity [None]
  - Pain in extremity [None]
  - Hepatic pain [None]
  - Disturbance in attention [None]
  - Anxiety [None]
  - Fatigue [None]
  - Muscular weakness [None]
  - Tremor [None]
  - Visual impairment [None]
  - Depression [None]
  - Suicidal ideation [None]
  - Headache [None]
  - Drug intolerance [None]
